FAERS Safety Report 8953262 (Version 3)
Quarter: 2013Q1

REPORT INFORMATION
  Report Type: Spontaneous
  Country: NL (occurrence: NL)
  Receive Date: 20121206
  Receipt Date: 20130226
  Transmission Date: 20140127
  Serious: Yes (Hospitalization)
  Sender: FDA-Public Use
  Company Number: NL-AMGEN-NLDSP2012077907

PATIENT
  Age: 50 Year
  Sex: Female

DRUGS (8)
  1. NEULASTA [Suspect]
     Indication: ADJUVANT THERAPY
     Dosage: 6 MG, Q3WK
     Route: 058
     Dates: start: 20120830
  2. DEXAMETHASONE [Concomitant]
     Dosage: UNK
  3. EMEND                              /01627301/ [Concomitant]
     Dosage: UNK
  4. PRIMPERAN [Concomitant]
     Dosage: UNK
  5. PARACETAMOL [Concomitant]
     Dosage: UNK, PRN
  6. TAXOTERE [Concomitant]
     Dosage: UNK
  7. ADRIAMYCIN                         /00330901/ [Concomitant]
     Dosage: UNK
  8. CYCLOPHOSPHAMIDE [Concomitant]
     Dosage: UNK

REACTIONS (4)
  - Malaise [Unknown]
  - Oxygen saturation decreased [Unknown]
  - Platelet count decreased [Unknown]
  - Dehydration [Unknown]
